FAERS Safety Report 11825918 (Version 1)
Quarter: 2015Q4

REPORT INFORMATION
  Report Type: Report from Study
  Country: IT (occurrence: IT)
  Receive Date: 20151211
  Receipt Date: 20151211
  Transmission Date: 20160305
  Serious: Yes (Other)
  Sender: FDA-Public Use
  Company Number: IT-ACCORD-036149

PATIENT
  Age: 67 Year
  Sex: Female

DRUGS (2)
  1. ABRAXANE [Suspect]
     Active Substance: PACLITAXEL
     Indication: PANCREATIC CARCINOMA METASTATIC
     Dosage: 100 MG/M? ON DAY 1,8 AND 15
     Dates: start: 20151001, end: 20151030
  2. GEMCITABINE/GEMCITABINE HYDROCHLORIDE [Suspect]
     Active Substance: GEMCITABINE\GEMCITABINE HYDROCHLORIDE
     Indication: PANCREATIC CARCINOMA METASTATIC
     Dosage: 100 MG/M? ON DAY 1,8 AND 15
     Dates: start: 201510, end: 201510

REACTIONS (4)
  - Haematotoxicity [Unknown]
  - Disease progression [Unknown]
  - Malignant neoplasm progression [None]
  - Pancreatic carcinoma metastatic [None]
